FAERS Safety Report 16149633 (Version 2)
Quarter: 2019Q2

REPORT INFORMATION
  Report Type: Spontaneous
  Country: US (occurrence: US)
  Receive Date: 20190402
  Receipt Date: 20190606
  Transmission Date: 20190711
  Serious: No
  Sender: FDA-Public Use
  Company Number: US-BAUSCH-BL-2019-007330

PATIENT
  Age: 31 Year
  Sex: Male

DRUGS (6)
  1. ZOLOFT [Suspect]
     Active Substance: SERTRALINE HYDROCHLORIDE
     Indication: DEPRESSION
     Dosage: FOR 3 YEARS, A COUPLE OF YEARS AGO, UP TO 65MG
     Route: 065
  2. ATIVAN [Suspect]
     Active Substance: LORAZEPAM
     Indication: ANXIETY
  3. ATIVAN [Suspect]
     Active Substance: LORAZEPAM
     Indication: SUPPLEMENTATION THERAPY
  4. ZOLOFT [Suspect]
     Active Substance: SERTRALINE HYDROCHLORIDE
     Dosage: NOW UP TO 75 MG.
     Route: 065
  5. ATIVAN [Suspect]
     Active Substance: LORAZEPAM
     Indication: DEPRESSION
     Dosage: TO SUPPLEMENT
     Route: 065
  6. ZOLOFT [Suspect]
     Active Substance: SERTRALINE HYDROCHLORIDE
     Indication: ANXIETY
     Dosage: FOR 4-5 WEEKS STARTED ON 25 MG
     Route: 065

REACTIONS (1)
  - Therapeutic product effect incomplete [Unknown]
